FAERS Safety Report 21733336 (Version 1)
Quarter: 2022Q4

REPORT INFORMATION
  Report Type: Report from Study
  Country: US (occurrence: US)
  Receive Date: 20221215
  Receipt Date: 20221215
  Transmission Date: 20230113
  Serious: No
  Sender: FDA-Public Use
  Company Number: US-ABBVIE-22K-163-4477583-00

PATIENT
  Age: 57 Year
  Sex: Female

DRUGS (10)
  1. RINVOQ [Suspect]
     Active Substance: UPADACITINIB
     Indication: Psoriatic arthropathy
     Route: 048
     Dates: end: 202207
  2. RINVOQ [Suspect]
     Active Substance: UPADACITINIB
     Indication: Psoriatic arthropathy
     Route: 048
  3. VITAMIN C [Concomitant]
     Active Substance: ASCORBIC ACID
     Indication: Product used for unknown indication
     Dosage: FIRST ADMIN DATE 3 PLUS YEARS BEFORE
     Route: 048
  4. MODERNA COVID-19 VACCINE [Concomitant]
     Active Substance: ELASOMERAN
     Indication: COVID-19 immunisation
     Dosage: TIME INTERVAL: 1 TOTAL: FIRST DOSE
     Route: 030
  5. MODERNA COVID-19 VACCINE [Concomitant]
     Active Substance: ELASOMERAN
     Indication: COVID-19 immunisation
     Dosage: TIME INTERVAL: 1 TOTAL: SECOND DOSE
     Route: 030
  6. FISH OIL\OMEGA-3 FATTY ACIDS [Concomitant]
     Active Substance: FISH OIL\OMEGA-3 FATTY ACIDS
     Indication: Product used for unknown indication
     Dosage: FIRST ADMIN DATE 3 PLUS YEARS BEFORE
     Route: 048
  7. PFIZER-BIONTECH COVID-19 VACCINE [Concomitant]
     Active Substance: TOZINAMERAN
     Indication: COVID-19 immunisation
     Dosage: TIME INTERVAL: 1 TOTAL: BOOSTER DOSE
     Route: 030
  8. MAGNESIUM CITRATE [Concomitant]
     Active Substance: MAGNESIUM CITRATE
     Indication: Product used for unknown indication
     Dosage: FIRST ADMIN DATE 3 PLUS YEARS BEFORE
     Route: 048
  9. VITAMIN D3 [Concomitant]
     Active Substance: CHOLECALCIFEROL
     Indication: Product used for unknown indication
     Dosage: FIRST ADMIN DATE 20 PLUS YEARS BEFORE
  10. ACYCLOVIR [Concomitant]
     Active Substance: ACYCLOVIR
     Indication: Product used for unknown indication
     Dosage: FIRST ADMIN DATE 10 PLUS YEARS BEFORE

REACTIONS (3)
  - Eye infection [Recovering/Resolving]
  - Periorbital cellulitis [Not Recovered/Not Resolved]
  - Chalazion [Unknown]

NARRATIVE: CASE EVENT DATE: 20220701
